FAERS Safety Report 6967613-4 (Version None)
Quarter: 2010Q3

REPORT INFORMATION
  Report Type: 
  Country: None (occurrence: None)
  Receive Date: 20100901
  Receipt Date: 20100818
  Transmission Date: 20110219
  Serious: Yes (Hospitalization)
  Sender: FDA-Public Use
  Company Number: DSA_43235-2010

PATIENT
  Age: 77 Year
  Sex: Male

DRUGS (3)
  1. DILTIAZEM [Suspect]
     Indication: PRODUCT USED FOR UNKNOWN INDICATION
     Dosage: 300 MG QD ORAL
     Route: 048
     Dates: end: 20091119
  2. KARDEGIC [Concomitant]
  3. PERINDOPRIL ERBUMINE [Concomitant]

REACTIONS (8)
  - ATRIAL FIBRILLATION [None]
  - BRADYCARDIA [None]
  - FALL [None]
  - MALNUTRITION [None]
  - RHABDOMYOLYSIS [None]
  - SOCIAL PHOBIA [None]
  - URINE ANALYSIS ABNORMAL [None]
  - VENOUS INSUFFICIENCY [None]
